FAERS Safety Report 9785873 (Version 2)
Quarter: 2014Q1

REPORT INFORMATION
  Report Type: Spontaneous
  Country: US (occurrence: US)
  Receive Date: 20131227
  Receipt Date: 20140306
  Transmission Date: 20141002
  Serious: Yes (Disabling)
  Sender: FDA-Public Use
  Company Number: US-PERRIGO-13US013087

PATIENT
  Age: 56 Year
  Sex: Male
  Weight: 90.7 kg

DRUGS (2)
  1. TUSSIN DM MAX 799 [Suspect]
     Indication: COUGH
     Dosage: 10 ML, SINGLE
     Route: 048
     Dates: start: 20131218, end: 20131218
  2. TUSSIN DM MAX 799 [Suspect]
     Indication: PULMONARY CONGESTION

REACTIONS (1)
  - Laryngitis [Not Recovered/Not Resolved]
